FAERS Safety Report 6231809-X (Version None)
Quarter: 2009Q2

REPORT INFORMATION
  Report Type: 
  Country: None (occurrence: None)
  Receive Date: 20090612
  Receipt Date: 20090612
  Transmission Date: 20091009
  Serious: Yes (Other)
  Sender: FDA-Public Use
  Company Number: None

PATIENT
  Age: 72 Year
  Sex: Male
  Weight: 77.1115 kg

DRUGS (2)
  1. RITUXIMAB GENENTECH [Suspect]
     Indication: AUTOIMMUNE THROMBOCYTOPENIA
     Dosage: 1000 MG Q2WKS IV 2 INFUSIONS
     Route: 042
     Dates: start: 20071001, end: 20071014
  2. RITUXIMAB GENENTECH [Suspect]
     Indication: VASCULITIS
     Dosage: 1000 MG Q2WKS IV 2 INFUSIONS
     Route: 042
     Dates: start: 20071001, end: 20071014

REACTIONS (2)
  - MYCOBACTERIUM KANSASII INFECTION [None]
  - NODULE [None]
